FAERS Safety Report 23921875 (Version 2)
Quarter: 2024Q4

REPORT INFORMATION
  Report Type: Spontaneous
  Country: JP (occurrence: JP)
  Receive Date: 20240530
  Receipt Date: 20241025
  Transmission Date: 20250115
  Serious: Yes (Other)
  Sender: UCB
  Company Number: JP-UCBJ-CD202404761UCBPHAPROD

PATIENT
  Age: 23 Year
  Sex: Male

DRUGS (1)
  1. FINTEPLA [Suspect]
     Active Substance: FENFLURAMINE
     Indication: Lennox-Gastaut syndrome
     Dosage: 0.03 MILLILITER PER DAY
     Route: 048

REACTIONS (2)
  - Epilepsy [Recovering/Resolving]
  - Decreased appetite [Recovered/Resolved]
